FAERS Safety Report 6274560-2 (Version None)
Quarter: 2009Q3

REPORT INFORMATION
  Report Type: 
  Country: None (occurrence: None)
  Receive Date: 20090720
  Receipt Date: 20090630
  Transmission Date: 20100115
  Serious: Yes (Other)
  Sender: FDA-Public Use
  Company Number: US-GENENTECH-285919

PATIENT
  Sex: Female

DRUGS (2)
  1. AVASTIN [Suspect]
     Indication: SMALL INTESTINE CARCINOMA
     Dosage: 300 MG, Q2W
     Route: 042
     Dates: start: 20090301, end: 20090401
  2. AVASTIN [Suspect]
     Dosage: 300 MG, Q2W
     Route: 042
     Dates: start: 20090601

REACTIONS (2)
  - HYDRONEPHROSIS [None]
  - RENAL FAILURE [None]
